FAERS Safety Report 20740599 (Version 1)
Quarter: 2022Q2

REPORT INFORMATION
  Report Type: Report from Study
  Country: ES (occurrence: ES)
  Receive Date: 20220422
  Receipt Date: 20220422
  Transmission Date: 20220721
  Serious: Yes (Hospitalization)
  Sender: FDA-Public Use
  Company Number: None

PATIENT
  Age: 73 Year
  Sex: Male

DRUGS (9)
  1. ALPRAZOLAM [Suspect]
     Active Substance: ALPRAZOLAM
     Indication: Anxiolytic therapy
     Dosage: 0.5 TABLETS EVERY 8 HOURS, ALPRAZOLAM (99A), DURATION : 15 DAYS
     Route: 048
     Dates: start: 20211028, end: 20211111
  2. LORAZEPAM [Suspect]
     Active Substance: LORAZEPAM
     Indication: Anxiolytic therapy
     Dosage: 1 TABLET EVERY 24 HOURS, 50 TABLETS, STRENGTH: 1 MG, DURATION : 65 DAYS
     Route: 048
     Dates: start: 20210908, end: 20211111
  3. EDOXABAN [Concomitant]
     Active Substance: EDOXABAN
     Dosage: 1 TABLET A DAY,  28 TABLETS, STRENGTH: 30 MG
     Route: 048
     Dates: start: 20210825
  4. ALLOPURINOL [Concomitant]
     Active Substance: ALLOPURINOL
     Indication: Hyperuricaemia
     Dosage: 1 TABLET EVERY 24 HOURS, ALOPURINOL (318A)
     Route: 048
     Dates: start: 202104
  5. PAROXETINE HYDROCHLORIDE [Concomitant]
     Active Substance: PAROXETINE HYDROCHLORIDE
     Dosage: 1 TABLET A DAY, PAROXETINA (2586A)
     Route: 048
     Dates: start: 20211028
  6. OMEPRAZOLE [Concomitant]
     Active Substance: OMEPRAZOLE
     Dosage: 1 CAP A DAY, OMEPRAZOL (2141A)
     Route: 048
     Dates: start: 20210315
  7. SPIRONOLACTONE [Concomitant]
     Active Substance: SPIRONOLACTONE
     Indication: Polyuria
     Dosage: 0.5 TABLETS PER DAY, ESPIRONOLACTONA (326A)
     Route: 048
     Dates: start: 202107
  8. DUTASTERIDE\TAMSULOSIN HYDROCHLORIDE [Concomitant]
     Active Substance: DUTASTERIDE\TAMSULOSIN HYDROCHLORIDE
     Indication: Polyuria
     Dosage: 1 CAPSULE EVERY 24 HOURS, DUTASTERIDA + TAMSULOSINA, DURATION : 143 DAYS
     Route: 048
     Dates: start: 20210622, end: 20211111
  9. AMIODARONE [Concomitant]
     Active Substance: AMIODARONE
     Indication: Arrhythmia
     Dosage: 1 TABLET A DAY, AMIODARONA (392A)
     Route: 048
     Dates: start: 202103

REACTIONS (1)
  - Depressed level of consciousness [Recovered/Resolved]

NARRATIVE: CASE EVENT DATE: 20211111
